FAERS Safety Report 6709992-9 (Version None)
Quarter: 2010Q2

REPORT INFORMATION
  Report Type: 
  Country: None (occurrence: None)
  Receive Date: 20100503
  Receipt Date: 20100503
  Transmission Date: 20101027
  Serious: Yes (Hospitalization, Disabling)
  Sender: FDA-Public Use
  Company Number: None

PATIENT
  Age: 4 Year
  Sex: Male
  Weight: 18.1439 kg

DRUGS (1)
  1. CHILDREN'S MOTRIN [Suspect]
     Indication: PYREXIA
     Dosage: 5 ML 1 X PO
     Route: 048
     Dates: start: 20091124, end: 20091124

REACTIONS (4)
  - ADVERSE REACTION [None]
  - EYE SWELLING [None]
  - LIP SWELLING [None]
  - PRODUCT QUALITY ISSUE [None]
